FAERS Safety Report 4434683-7 (Version None)
Quarter: 2004Q3

REPORT INFORMATION
  Report Type: 
  Country: None (occurrence: None)
  Receive Date: 20040826
  Receipt Date: 20040812
  Transmission Date: 20050211
  Serious: Yes (Death)
  Sender: FDA-Public Use
  Company Number: 2004S1002400

PATIENT
  Age: 70 Year
  Sex: Male

DRUGS (2)
  1. CLOZAPINE [Suspect]
     Dosage: 50MG Q AM, ORAL
     Route: 048
  2. CLOZAPINE [Suspect]
     Dosage: 100MG Q HS, ORAL
     Route: 048

REACTIONS (1)
  - DEATH [None]
